FAERS Safety Report 24118002 (Version 2)
Quarter: 2024Q3

REPORT INFORMATION
  Report Type: Spontaneous
  Country: DK (occurrence: DK)
  Receive Date: 20240722
  Receipt Date: 20240823
  Transmission Date: 20241016
  Serious: Yes (Hospitalization)
  Sender: Alora Pharma
  Company Number: DK-TRIGEN LABORATORIES-2024ALO00327

PATIENT
  Age: 39 Year
  Sex: Male

DRUGS (1)
  1. METHYLPHENIDATE [Suspect]
     Active Substance: METHYLPHENIDATE

REACTIONS (3)
  - Artery dissection [Unknown]
  - Blood pressure increased [Unknown]
  - Splenic infarction [Unknown]
